FAERS Safety Report 23152110 (Version 1)
Quarter: 2023Q4

REPORT INFORMATION
  Report Type: Spontaneous
  Country: IT (occurrence: IT)
  Receive Date: 20231107
  Receipt Date: 20231107
  Transmission Date: 20240110
  Serious: Yes (Congenital Anomaly, Other)
  Sender: FDA-Public Use
  Company Number: IT-GLAXOSMITHKLINE-IT2023GSK148386

PATIENT
  Age: 33 Week
  Weight: 2 kg

DRUGS (1)
  1. VALACYCLOVIR HYDROCHLORIDE [Suspect]
     Active Substance: VALACYCLOVIR HYDROCHLORIDE
     Indication: Product used for unknown indication
     Dosage: 2 GRAM, EVERY 6 HOURS
     Route: 064

REACTIONS (3)
  - Congenital cytomegalovirus infection [Unknown]
  - Premature baby [Unknown]
  - Foetal exposure during pregnancy [Unknown]
